FAERS Safety Report 22845657 (Version 2)
Quarter: 2023Q4

REPORT INFORMATION
  Report Type: Report from Study
  Country: US (occurrence: US)
  Receive Date: 20230821
  Receipt Date: 20231104
  Transmission Date: 20240110
  Serious: No
  Sender: FDA-Public Use
  Company Number: US-002147023-NVSC2023US181906

PATIENT

DRUGS (1)
  1. KESIMPTA [Suspect]
     Active Substance: OFATUMUMAB
     Indication: Relapsing multiple sclerosis
     Dosage: UNK
     Route: 058

REACTIONS (6)
  - Influenza like illness [Unknown]
  - Pyrexia [Recovered/Resolved]
  - Chills [Recovering/Resolving]
  - Asthenia [Unknown]
  - Headache [Recovered/Resolved]
  - Fatigue [Recovering/Resolving]
